FAERS Safety Report 12030407 (Version 1)
Quarter: 2016Q1

REPORT INFORMATION
  Report Type: Report from Study
  Country: US (occurrence: US)
  Receive Date: 20160207
  Receipt Date: 20160207
  Transmission Date: 20160526
  Serious: No
  Sender: FDA-Public Use
  Company Number: US-ABBVIE-15K-163-1504999-00

PATIENT
  Age: 71 Year
  Sex: Female

DRUGS (2)
  1. HUMIRA [Suspect]
     Active Substance: ADALIMUMAB
     Indication: PSORIASIS
     Dosage: LOADING DOSE
     Route: 058
     Dates: start: 20151022, end: 20151022
  2. HUMIRA [Suspect]
     Active Substance: ADALIMUMAB
     Route: 058
     Dates: start: 20151029

REACTIONS (5)
  - Elbow deformity [Unknown]
  - Musculoskeletal discomfort [Unknown]
  - Rash pruritic [Not Recovered/Not Resolved]
  - Rash erythematous [Unknown]
  - Limb deformity [Unknown]

NARRATIVE: CASE EVENT DATE: 20151029
